FAERS Safety Report 8181893-1 (Version None)
Quarter: 2012Q1

REPORT INFORMATION
  Report Type: 
  Country: None (occurrence: None)
  Receive Date: 20120302
  Receipt Date: 20120130
  Transmission Date: 20120608
  Serious: Yes (Hospitalization)
  Sender: FDA-Public Use
  Company Number: US-ROCHE-795331

PATIENT
  Sex: Female
  Weight: 97.7 kg

DRUGS (30)
  1. DARVOCET-N 50 [Concomitant]
     Dosage: DRUG NAME REPORTED AS DARVOCET N-100
  2. ANCEF [Concomitant]
     Dates: start: 20110805, end: 20110806
  3. INSULIN [Concomitant]
     Dosage: TDD: 0-8 IU
     Dates: start: 20110805, end: 20110805
  4. METHOTREXATE [Concomitant]
  5. FOLIC ACID [Concomitant]
  6. PLAVIX [Concomitant]
  7. PLAVIX [Concomitant]
  8. CALCIUM [Concomitant]
  9. GLIMEPIRIDE [Concomitant]
  10. IPRATROPIUM BROMIDE [Concomitant]
     Dates: start: 20101008
  11. LORTAB [Concomitant]
     Dates: start: 20110806
  12. ACTEMRA [Suspect]
     Indication: RHEUMATOID ARTHRITIS
     Route: 042
  13. ACTEMRA [Suspect]
     Route: 042
  14. TRAMADOL HCL [Concomitant]
     Dates: start: 20101217
  15. ACETAMINOPHEN [Concomitant]
     Dates: start: 20110805, end: 20110805
  16. ACTEMRA [Suspect]
     Route: 042
  17. METHOTREXATE [Concomitant]
  18. ASPIRIN [Concomitant]
  19. PEPCID [Concomitant]
     Dates: start: 20110803, end: 20110805
  20. ACTEMRA [Suspect]
     Route: 042
  21. ACTEMRA [Suspect]
     Route: 042
  22. ACTEMRA [Suspect]
     Route: 042
  23. CALCIUM [Concomitant]
  24. ALBUMIN (HUMAN) [Concomitant]
     Dates: start: 20110806, end: 20110806
  25. PLACEBO [Suspect]
     Indication: RHEUMATOID ARTHRITIS
     Route: 042
  26. VYTORIN [Concomitant]
     Dosage: TDD REPORTED AS 10/40 MG
  27. TYLENOL-500 [Concomitant]
  28. ALBUTEROL SULFATE [Concomitant]
     Dates: start: 20101008
  29. KEFLEX [Concomitant]
     Dates: start: 20110812, end: 20110817
  30. MORPHINE [Concomitant]
     Dates: start: 20110805, end: 20110805

REACTIONS (1)
  - AORTIC ANEURYSM [None]
